FAERS Safety Report 20038147 (Version 2)
Quarter: 2021Q4

REPORT INFORMATION
  Report Type: Spontaneous
  Country: CO (occurrence: CO)
  Receive Date: 20211105
  Receipt Date: 20211223
  Transmission Date: 20220303
  Serious: No
  Sender: FDA-Public Use
  Company Number: CO-PFIZER INC-202101198352

PATIENT
  Age: 8 Year
  Sex: Male
  Weight: 28 kg

DRUGS (1)
  1. GENOTROPIN [Suspect]
     Active Substance: SOMATROPIN
     Indication: Short stature
     Dosage: 12 MG, DAILY
     Dates: start: 201906

REACTIONS (2)
  - Wrong technique in device usage process [Unknown]
  - Device information output issue [Unknown]

NARRATIVE: CASE EVENT DATE: 20210912
